FAERS Safety Report 4408690-4 (Version None)
Quarter: 2004Q3

REPORT INFORMATION
  Report Type: 
  Country: None (occurrence: None)
  Receive Date: 20040722
  Receipt Date: 20040708
  Transmission Date: 20050211
  Serious: Yes (Hospitalization)
  Sender: FDA-Public Use
  Company Number: 175268

PATIENT
  Age: 41 Year
  Sex: Female
  Weight: 75.2971 kg

DRUGS (5)
  1. AVONEX [Suspect]
     Indication: MULTIPLE SCLEROSIS
     Dosage: 30 MCG QW IM
     Route: 030
  2. CELEXA [Concomitant]
  3. COLACE [Concomitant]
  4. NEURONTIN [Concomitant]
  5. BACLOFEN [Concomitant]

REACTIONS (8)
  - DECUBITUS ULCER [None]
  - ENTEROCOCCAL INFECTION [None]
  - ESCHERICHIA INFECTION [None]
  - IMPAIRED HEALING [None]
  - PATHOGEN RESISTANCE [None]
  - URINARY TRACT INFECTION [None]
  - WOUND INFECTION [None]
  - WOUND INFECTION STAPHYLOCOCCAL [None]
